FAERS Safety Report 14912532 (Version 1)
Quarter: 2018Q2

REPORT INFORMATION
  Report Type: Spontaneous
  Country: US (occurrence: US)
  Receive Date: 20180501
  Receipt Date: 20180501
  Transmission Date: 20180711
  Serious: Yes (Other)
  Sender: FDA-Public Use
  Company Number: None

PATIENT
  Age: 24 Year
  Sex: Female
  Weight: 118.35 kg

DRUGS (1)
  1. SERTRALINE [Suspect]
     Active Substance: SERTRALINE HYDROCHLORIDE
     Indication: ANXIETY
     Route: 048
     Dates: start: 20140501, end: 20180425

REACTIONS (10)
  - Serotonin syndrome [None]
  - Head discomfort [None]
  - Aphasia [None]
  - Muscle rigidity [None]
  - Grip strength decreased [None]
  - Migraine [None]
  - Cognitive disorder [None]
  - Saccadic eye movement [None]
  - Tachycardia [None]
  - Seizure [None]

NARRATIVE: CASE EVENT DATE: 20180425
